FAERS Safety Report 11452960 (Version 4)
Quarter: 2021Q1

REPORT INFORMATION
  Report Type: Report from Study
  Country: JP (occurrence: JP)
  Receive Date: 20150903
  Receipt Date: 20210216
  Transmission Date: 20210419
  Serious: Yes (Other)
  Sender: FDA-Public Use
  Company Number: PHHY2013JP127938

PATIENT
  Age: 53 Year
  Sex: Female

DRUGS (25)
  1. PALIPERIDONE. [Suspect]
     Active Substance: PALIPERIDONE
     Indication: HALLUCINATION, AUDITORY
  2. LIMAS [Concomitant]
     Active Substance: LITHIUM CARBONATE
     Indication: SCHIZOPHRENIA
     Dosage: 400 MG, QD
     Route: 048
     Dates: start: 20131017, end: 20131107
  3. NELBON [Concomitant]
     Active Substance: NITRAZEPAM
     Indication: SCHIZOPHRENIA
     Dosage: 5 MG, QD
     Route: 048
     Dates: start: 20131111, end: 20131114
  4. LONASEN [Concomitant]
     Active Substance: BLONANSERIN
     Indication: HALLUCINATION, AUDITORY
     Dosage: UNK
     Route: 048
  5. HALOPERIDOL. [Suspect]
     Active Substance: HALOPERIDOL
     Indication: HALLUCINATION, AUDITORY
  6. PALIPERIDONE. [Suspect]
     Active Substance: PALIPERIDONE
     Indication: SCHIZOPHRENIA
     Dosage: 6 MG, QD
     Route: 065
  7. ARIPIPRAZOLE. [Suspect]
     Active Substance: ARIPIPRAZOLE
     Indication: SCHIZOPHRENIA
     Route: 065
  8. SENNARIDE [Concomitant]
     Active Substance: SENNOSIDES A AND B
     Indication: CONSTIPATION PROPHYLAXIS
     Dosage: 48 MG, QD
     Route: 048
     Dates: start: 20131017
  9. ROHYPNOL [Concomitant]
     Active Substance: FLUNITRAZEPAM
     Dosage: 2 MG, QD
     Route: 048
     Dates: start: 20131128
  10. HALOPERIDOL. [Suspect]
     Active Substance: HALOPERIDOL
     Indication: SCHIZOPHRENIA
     Dosage: UNK
     Route: 065
  11. RIBAVARIN [Concomitant]
     Active Substance: RIBAVIRIN
     Indication: PROPHYLAXIS
     Dosage: 750 MG, QD
     Route: 048
     Dates: start: 20131212, end: 20131215
  12. CLOZARIL [Suspect]
     Active Substance: CLOZAPINE
     Dosage: 450 MG, QD
     Route: 048
     Dates: start: 20131017, end: 20131107
  13. OLANZAPINE. [Suspect]
     Active Substance: OLANZAPINE
     Indication: SCHIZOPHRENIA
     Dosage: UNK
     Route: 065
  14. ARIPIPRAZOLE. [Suspect]
     Active Substance: ARIPIPRAZOLE
     Indication: PERSECUTORY DELUSION
  15. S.M. [Concomitant]
     Indication: CONSTIPATION PROPHYLAXIS
     Dosage: 2600 MG, QD
     Route: 048
     Dates: start: 20131017, end: 20131107
  16. LENDORMIN [Concomitant]
     Active Substance: BROTIZOLAM
     Indication: SCHIZOPHRENIA
     Dosage: 0.25 MG, QD
     Route: 048
     Dates: start: 20131115
  17. BLONANSERIN [Concomitant]
     Active Substance: BLONANSERIN
     Indication: SCHIZOPHRENIA
     Dosage: UNK
     Route: 065
  18. OLANZAPINE. [Suspect]
     Active Substance: OLANZAPINE
     Indication: PERSECUTORY DELUSION
  19. OLANZAPINE. [Suspect]
     Active Substance: OLANZAPINE
     Indication: HALLUCINATION, AUDITORY
  20. CLOZARIL [Suspect]
     Active Substance: CLOZAPINE
     Indication: SCHIZOPHRENIA
     Dosage: UNK
     Route: 048
     Dates: start: 20130716
  21. ARIPIPRAZOLE. [Suspect]
     Active Substance: ARIPIPRAZOLE
     Indication: HALLUCINATION, AUDITORY
  22. MAGMITT [Concomitant]
     Active Substance: MAGNESIUM OXIDE
     Indication: CONSTIPATION PROPHYLAXIS
     Dosage: 1320 MG, QD
     Route: 048
     Dates: start: 20131017, end: 20131107
  23. ROHYPNOL [Concomitant]
     Active Substance: FLUNITRAZEPAM
     Indication: SCHIZOPHRENIA
     Dosage: 1 MG, QD
     Route: 048
     Dates: start: 20131017, end: 20131107
  24. MUCODYNE [Concomitant]
     Active Substance: CARBOCYSTEINE
     Indication: PROPHYLAXIS
     Dosage: 1500 MG, QD
     Route: 048
     Dates: start: 20131125, end: 20131208
  25. TAKA?DIASTASE [Concomitant]
     Active Substance: DIASTASE
     Indication: CONSTIPATION
     Dosage: 2600 MG, QD
     Route: 048
     Dates: start: 20131017, end: 20131107

REACTIONS (12)
  - White blood cell count decreased [Recovering/Resolving]
  - Depressed level of consciousness [Unknown]
  - Pyrexia [Unknown]
  - White blood cell count increased [Recovered/Resolved]
  - Dysphagia [Unknown]
  - Agranulocytosis [Recovering/Resolving]
  - Hallucination [Unknown]
  - Neutrophil percentage increased [Recovered/Resolved]
  - Salivary hypersecretion [Unknown]
  - White blood cell count increased [Recovered/Resolved]
  - Musculoskeletal stiffness [Unknown]
  - Blood pressure decreased [Unknown]

NARRATIVE: CASE EVENT DATE: 20131107
